FAERS Safety Report 7745304-X (Version None)
Quarter: 2011Q3

REPORT INFORMATION
  Report Type: 
  Country: None (occurrence: None)
  Receive Date: 20110819
  Receipt Date: 20110517
  Transmission Date: 20111222
  Serious: No
  Sender: FDA-Public Use
  Company Number: 026518

PATIENT
  Age: 49 Year
  Sex: Male

DRUGS (3)
  1. LACOSAMIDE [Suspect]
     Dosage: (50 MG BID)
     Dates: start: 20110101, end: 20110101
  2. KEPPRA [Concomitant]
  3. LAMOTRIGINE [Concomitant]

REACTIONS (2)
  - DYSPNOEA [None]
  - HEART RATE IRREGULAR [None]
